FAERS Safety Report 4766707-1 (Version None)
Quarter: 2005Q3

REPORT INFORMATION
  Report Type: 
  Country: None (occurrence: None)
  Receive Date: 20050907
  Receipt Date: 20050809
  Transmission Date: 20060218
  Serious: Yes (Hospitalization, Other)
  Sender: FDA-Public Use
  Company Number: 2005BH001124

PATIENT
  Sex: Female

DRUGS (1)
  1. DOBUTAMINE HCL [Suspect]
     Dosage: IV
     Route: 042

REACTIONS (4)
  - DRUG LEVEL BELOW THERAPEUTIC [None]
  - FLUID OVERLOAD [None]
  - INCORRECT DOSE ADMINISTERED [None]
  - MEDICATION ERROR [None]
